FAERS Safety Report 5311336-4 (Version None)
Quarter: 2007Q2

REPORT INFORMATION
  Report Type: 
  Country: None (occurrence: None)
  Receive Date: 20070430
  Receipt Date: 20070424
  Transmission Date: 20071010
  Serious: Yes (Other)
  Sender: FDA-Public Use
  Company Number: PHMT2007CA01106

PATIENT
  Age: 50 Year

DRUGS (1)
  1. ZELNORM [Suspect]

REACTIONS (1)
  - MYOCARDIAL INFARCTION [None]
